FAERS Safety Report 25256707 (Version 1)
Quarter: 2025Q2

REPORT INFORMATION
  Report Type: Spontaneous
  Country: AR (occurrence: AR)
  Receive Date: 20250430
  Receipt Date: 20250430
  Transmission Date: 20250717
  Serious: Yes (Hospitalization)
  Sender: TAKEDA
  Company Number: AR-TAKEDA-2025TUS031101

PATIENT
  Age: 0 Year
  Sex: Male
  Weight: 12.9 kg

DRUGS (8)
  1. ELAPRASE [Suspect]
     Active Substance: IDURSULFASE
     Indication: Product used for unknown indication
  2. ELAPRASE [Suspect]
     Active Substance: IDURSULFASE
     Dosage: 6 MILLIGRAM, 1/WEEK
     Dates: start: 20250313
  3. ELAPRASE [Suspect]
     Active Substance: IDURSULFASE
     Dosage: 6 MILLIGRAM, 1/WEEK
     Dates: start: 20250320
  4. ELAPRASE [Suspect]
     Active Substance: IDURSULFASE
     Dosage: 4.2 MILLIGRAM, 1/WEEK
     Dates: start: 20250414
  5. DIPHENHYDRAMINE [Concomitant]
     Active Substance: DIPHENHYDRAMINE
  6. DIPHENHYDRAMINE [Concomitant]
     Active Substance: DIPHENHYDRAMINE
  7. FEXOFENADINE [Concomitant]
     Active Substance: FEXOFENADINE HYDROCHLORIDE
     Dosage: 1.5 MILLILITER, Q12H
     Dates: start: 20250407
  8. CETIRIZINE [Concomitant]
     Active Substance: CETIRIZINE HYDROCHLORIDE
     Dosage: UNK UNK, Q12H
     Dates: start: 20250407

REACTIONS (6)
  - Pyrexia [Recovered/Resolved]
  - Erythema [Recovered/Resolved]
  - Vomiting [Recovered/Resolved]
  - Tachycardia [Recovered/Resolved]
  - Dyspnoea [Recovered/Resolved]
  - Papule [Unknown]

NARRATIVE: CASE EVENT DATE: 20250313
